FAERS Safety Report 9361565 (Version 3)
Quarter: 2013Q4

REPORT INFORMATION
  Report Type: Report from Study
  Country: US (occurrence: US)
  Receive Date: 20130621
  Receipt Date: 20131014
  Transmission Date: 20140711
  Serious: Yes (Other)
  Sender: FDA-Public Use
  Company Number: US-SANOFI-AVENTIS-2013SA061619

PATIENT
  Age: 48 Year
  Sex: Female
  Weight: 45.35 kg

DRUGS (8)
  1. AUBAGIO [Suspect]
     Indication: RELAPSING-REMITTING MULTIPLE SCLEROSIS
     Route: 048
     Dates: start: 20130521
  2. CLONAZEPAM [Concomitant]
     Indication: ANXIETY
     Dosage: 2 MONTHS AGO
     Route: 065
  3. LISINOPRIL [Concomitant]
     Indication: HYPERTENSION
     Dosage: 10 YEARS AGO
     Route: 065
  4. LEVOTHYROXINE [Concomitant]
     Indication: HYPOTHYROIDISM
     Dosage: 9 MONTHS AGO
     Route: 065
  5. ASPIRIN ^BAYER^ [Concomitant]
     Indication: CARDIAC DISORDER
     Dosage: 4 MONTHS AGO
     Route: 065
  6. LYRICA [Concomitant]
     Indication: PAIN
     Dosage: 2 MONTHS AGO
     Route: 065
  7. CYMBALTA [Concomitant]
     Indication: PAIN
     Dosage: 2 MONTHS AGO
     Route: 065
  8. MORPHINE [Concomitant]
     Indication: PAIN
     Dosage: PRODUCT STARTED 2 MONTHS AGO
     Route: 065

REACTIONS (13)
  - Panic attack [Recovered/Resolved]
  - Heart rate increased [Recovered/Resolved]
  - Anxiety [Not Recovered/Not Resolved]
  - Confusional state [Recovered/Resolved]
  - Vomiting [Recovered/Resolved]
  - Dizziness [Recovered/Resolved]
  - Nystagmus [Not Recovered/Not Resolved]
  - Pain [Not Recovered/Not Resolved]
  - Visual impairment [Not Recovered/Not Resolved]
  - Hypoaesthesia [Not Recovered/Not Resolved]
  - Sensory disturbance [Not Recovered/Not Resolved]
  - Nerve injury [Not Recovered/Not Resolved]
  - Pain [Not Recovered/Not Resolved]
